FAERS Safety Report 9580991 (Version 1)
Quarter: 2013Q3

REPORT INFORMATION
  Report Type: Spontaneous
  Country: US (occurrence: None)
  Receive Date: 20130916
  Receipt Date: 20130916
  Transmission Date: 20140515
  Serious: Yes (Other)
  Sender: FDA-Public Use
  Company Number: JPI-P-026285

PATIENT
  Age: 46 Year
  Sex: Male
  Weight: 88 kg

DRUGS (10)
  1. XYREM [Suspect]
     Indication: NARCOLEPSY
     Dosage: 2.5 GM (1.25 GM, 2 IN 1 D)
     Route: 048
     Dates: start: 20121031, end: 2012
  2. CLONAZEPAM (1 MILLIGRAM) [Concomitant]
  3. CLONIDINE [Concomitant]
  4. CYCLOBENZAPRINE HYDROCHLORIDE [Concomitant]
  5. AZELASTINE [Concomitant]
  6. ACETYLSALICYLIC ACID [Concomitant]
  7. OXYCODONE [Concomitant]
  8. ZOLPIDEM TARTRATE [Concomitant]
  9. HYDROCODONE [Concomitant]
  10. PIRBUTEROL [Concomitant]

REACTIONS (19)
  - Suicidal ideation [None]
  - Condition aggravated [None]
  - Poor quality sleep [None]
  - Muscle fatigue [None]
  - Haematochezia [None]
  - Anxiety [None]
  - Tachyphrenia [None]
  - Palpitations [None]
  - Night sweats [None]
  - Arthralgia [None]
  - Vision blurred [None]
  - Intentional drug misuse [None]
  - Insomnia [None]
  - Confusional state [None]
  - Disorientation [None]
  - Asthenia [None]
  - Gait disturbance [None]
  - Tremor [None]
  - Nausea [None]
